FAERS Safety Report 25741372 (Version 3)
Quarter: 2025Q4

REPORT INFORMATION
  Report Type: Spontaneous
  Country: AU (occurrence: None)
  Receive Date: 20250829
  Receipt Date: 20251023
  Transmission Date: 20260118
  Serious: Yes (Other)
  Sender: ORGANON
  Company Number: AU-ORGANON-O2508AUS001833

PATIENT
  Age: 81 Year
  Sex: Male

DRUGS (2)
  1. MONTELUKAST SODIUM [Suspect]
     Active Substance: MONTELUKAST SODIUM
     Indication: Asthma
     Dosage: UNK
  2. SINGULAIR [Suspect]
     Active Substance: MONTELUKAST SODIUM
     Indication: Asthma
     Dosage: UNK (FOR 20 YEARS)

REACTIONS (4)
  - Paralysis [Recovering/Resolving]
  - Asthma [Recovering/Resolving]
  - Traumatic lung injury [Unknown]
  - Product availability issue [Unknown]

NARRATIVE: CASE EVENT DATE: 20250101
